FAERS Safety Report 10079692 (Version 1)
Quarter: 2014Q2

REPORT INFORMATION
  Report Type: Spontaneous
  Country: US (occurrence: None)
  Receive Date: 20140414
  Receipt Date: 20140414
  Transmission Date: 20141212
  Serious: Yes (Hospitalization)
  Sender: FDA-Public Use
  Company Number: None

PATIENT
  Age: 27 Year
  Sex: Female
  Weight: 45.36 kg

DRUGS (1)
  1. SEROQUEL XR [Suspect]
     Indication: MAJOR DEPRESSION
     Route: 048
     Dates: start: 201011, end: 201104

REACTIONS (15)
  - Amnesia [None]
  - Hypoaesthesia [None]
  - Feeling abnormal [None]
  - Nightmare [None]
  - Gait disturbance [None]
  - Dehydration [None]
  - Blood potassium decreased [None]
  - Nausea [None]
  - Decreased appetite [None]
  - Chills [None]
  - Hot flush [None]
  - Cold sweat [None]
  - Abnormal behaviour [None]
  - Insomnia [None]
  - Speech disorder [None]
